FAERS Safety Report 19716128 (Version 1)
Quarter: 2021Q3

REPORT INFORMATION
  Report Type: Spontaneous
  Country: NO (occurrence: NO)
  Receive Date: 20210818
  Receipt Date: 20210818
  Transmission Date: 20211014
  Serious: Yes (Hospitalization)
  Sender: FDA-Public Use
  Company Number: NO-MYLANLABS-2021M1051659

PATIENT
  Age: 30 Year
  Sex: Female

DRUGS (3)
  1. CISPLATIN. [Suspect]
     Active Substance: CISPLATIN
     Indication: CERVIX CANCER METASTATIC
     Dosage: UNK
     Route: 065
  2. PACLITAXEL. [Suspect]
     Active Substance: PACLITAXEL
     Indication: CERVIX CANCER METASTATIC
     Dosage: UNK
     Route: 065
  3. AVASTIN                            /00848101/ [Suspect]
     Active Substance: SIMVASTATIN
     Indication: CERVIX CANCER METASTATIC
     Dosage: UNK
     Route: 065

REACTIONS (5)
  - Asthenia [Unknown]
  - Infection [Unknown]
  - Pain [Unknown]
  - Decreased appetite [Unknown]
  - Hypersomnia [Unknown]
